FAERS Safety Report 4860680-3 (Version None)
Quarter: 2005Q4

REPORT INFORMATION
  Report Type: 
  Country: None (occurrence: None)
  Receive Date: 20051216
  Receipt Date: 20051130
  Transmission Date: 20060501
  Serious: Yes (Hospitalization, Other)
  Sender: FDA-Public Use
  Company Number: US200512000153

PATIENT
  Age: 38 Year
  Sex: Female

DRUGS (1)
  1. HUMALOG [Suspect]
     Indication: DIABETES MELLITUS INSULIN-DEPENDENT
     Dates: start: 19990101

REACTIONS (7)
  - BLOOD GLUCOSE DECREASED [None]
  - CHOLECYSTECTOMY [None]
  - CONVULSION [None]
  - GASTRIC BYPASS [None]
  - LOSS OF CONSCIOUSNESS [None]
  - MIGRAINE [None]
  - SPLENECTOMY [None]
